FAERS Safety Report 9771862 (Version 1)
Quarter: 2013Q4

REPORT INFORMATION
  Report Type: Spontaneous
  Country: JP (occurrence: JP)
  Receive Date: 20131219
  Receipt Date: 20131219
  Transmission Date: 20140711
  Serious: Yes (Other)
  Sender: FDA-Public Use
  Company Number: PHHY2013JP147403

PATIENT
  Sex: Male

DRUGS (4)
  1. VOLTAREN [Suspect]
     Indication: PAIN
     Dosage: 50 MG, QD
     Route: 054
  2. VOLTAREN [Suspect]
     Dosage: ONE TO TWO SUPPOSITORIES DAILY
     Route: 054
  3. TRAMCET [Concomitant]
     Dosage: UNK UKN, UNK
     Route: 048
  4. LOXONIN [Concomitant]
     Dosage: 1 DF, TID
     Route: 048

REACTIONS (2)
  - Anuria [Unknown]
  - Haematochezia [Unknown]
